FAERS Safety Report 24957901 (Version 1)
Quarter: 2025Q1

REPORT INFORMATION
  Report Type: Report from Study
  Country: GB (occurrence: GB)
  Receive Date: 20250212
  Receipt Date: 20250212
  Transmission Date: 20250409
  Serious: Yes (Other)
  Sender: ALEXION PHARMACEUTICALS
  Company Number: GB-AstraZeneca-CH-00800915A

PATIENT
  Age: 36 Year

DRUGS (3)
  1. BENRALIZUMAB [Suspect]
     Active Substance: BENRALIZUMAB
     Indication: Asthma
     Route: 065
  2. ALBUTEROL [Concomitant]
     Active Substance: ALBUTEROL
     Route: 065
  3. TEZSPIRE [Concomitant]
     Active Substance: TEZEPELUMAB-EKKO
     Route: 065

REACTIONS (2)
  - Asthma [Recovered/Resolved]
  - Lower respiratory tract infection [Unknown]
